FAERS Safety Report 5416913-8 (Version None)
Quarter: 2007Q3

REPORT INFORMATION
  Report Type: 
  Country: None (occurrence: None)
  Receive Date: 20070816
  Receipt Date: 20070727
  Transmission Date: 20080115
  Serious: Yes (Other)
  Sender: FDA-Public Use
  Company Number: IE-PFIZER INC-2007063857

PATIENT
  Sex: Female

DRUGS (1)
  1. CHAMPIX [Suspect]
     Route: 048

REACTIONS (6)
  - AGITATION [None]
  - FORMICATION [None]
  - HYPERAESTHESIA [None]
  - HYPERSENSITIVITY [None]
  - PARAESTHESIA [None]
  - SLEEP DISORDER [None]
